FAERS Safety Report 8437324-7 (Version None)
Quarter: 2012Q2

REPORT INFORMATION
  Report Type: 
  Country: None (occurrence: None)
  Receive Date: 20120614
  Receipt Date: 20120308
  Transmission Date: 20120825
  Serious: No
  Sender: FDA-Public Use
  Company Number: US-AMGEN-USASP2011037897

PATIENT
  Age: 80 Year
  Sex: Female

DRUGS (9)
  1. PROLIA [Suspect]
     Indication: OSTEOPOROSIS POSTMENOPAUSAL
     Dosage: 60 MG, Q6MO
     Dates: start: 20110501, end: 20110501
  2. METOPROLOL TARTRATE [Concomitant]
     Dosage: UNK
  3. SIMVASTATIN [Concomitant]
     Dosage: UNK
  4. ALLOPURINOL [Concomitant]
     Dosage: UNK
  5. MULTIVITAMIN [Concomitant]
     Dosage: UNK
  6. ASPIRIN [Concomitant]
     Dosage: UNK
  7. ZEMPLAR [Concomitant]
     Dosage: UNK
  8. AMLODIPINE [Concomitant]
     Dosage: UNK
  9. TAMOXIFEN CITRATE [Concomitant]
     Dosage: UNK

REACTIONS (3)
  - HYPERCALCAEMIA [None]
  - BLOOD CREATININE ABNORMAL [None]
  - RENAL FAILURE ACUTE [None]
